FAERS Safety Report 7926455-3 (Version None)
Quarter: 2011Q4

REPORT INFORMATION
  Report Type: 
  Country: None (occurrence: None)
  Receive Date: 20111118
  Receipt Date: 20111110
  Transmission Date: 20120403
  Serious: No
  Sender: FDA-Public Use
  Company Number: US-BIOGENIDEC-2011BI043152

PATIENT
  Sex: Female

DRUGS (1)
  1. TYSABRI [Suspect]
     Indication: MULTIPLE SCLEROSIS
     Route: 042
     Dates: start: 20080709, end: 20110812

REACTIONS (6)
  - HYPERHIDROSIS [None]
  - FOOD ALLERGY [None]
  - NAUSEA [None]
  - PALPITATIONS [None]
  - CONSTIPATION [None]
  - MENTAL IMPAIRMENT [None]
